FAERS Safety Report 4337797-5 (Version None)
Quarter: 2004Q2

REPORT INFORMATION
  Report Type: 
  Country: None (occurrence: None)
  Receive Date: 20040408
  Receipt Date: 20040405
  Transmission Date: 20050107
  Serious: Yes (Other)
  Sender: FDA-Public Use
  Company Number: STA-AE-04-MTX-142

PATIENT
  Age: 51 Year
  Sex: Female

DRUGS (2)
  1. RHEUMATREX [Suspect]
     Indication: RHEUMATOID ARTHRITIS
     Dosage: 8 MG 1X PER 1WK, ORAL
     Route: 048
     Dates: start: 20020101, end: 20040101
  2. REMICADE [Suspect]
     Dosage: INTRAVENOUS
     Route: 011
     Dates: start: 20030101

REACTIONS (3)
  - SHOCK [None]
  - VERTIGO [None]
  - VOMITING [None]
